FAERS Safety Report 9613069 (Version 1)
Quarter: 2013Q3

REPORT INFORMATION
  Report Type: Spontaneous
  Country: US (occurrence: None)
  Receive Date: 20130927
  Receipt Date: 20130927
  Transmission Date: 20140515
  Serious: Yes (Hospitalization)
  Sender: FDA-Public Use
  Company Number: 2013037554

PATIENT
  Age: 72 Year
  Sex: Male
  Weight: 83.92 kg

DRUGS (23)
  1. HIZENTRA [Suspect]
     Indication: IMMUNODEFICIENCY COMMON VARIABLE
     Dosage: 13G, 1X/WEEK, ??AUG-2013; OVER 1-2 HOURS SUBCUTANEOUS
     Route: 058
     Dates: start: 201208
  2. DIPHENHYDRAMINE (DIPENHYDRRAMINE) [Concomitant]
  3. LIDOCAINE/PRILOCAINE (EMLA /00675501/) [Concomitant]
  4. EPI-PEN (EPINEPHRINE HYDROCHLORIDE) [Concomitant]
  5. LMX (LIDOCAINE) [Concomitant]
  6. GABAPENTIN (GABAPENTIN) [Concomitant]
  7. ACIPHEX (RABEPRAZOLE SODIUM) [Concomitant]
  8. CYCLOBENZAPRINE (CYCLOBENZAPRINE) [Concomitant]
  9. FEXOFENADINE [Concomitant]
  10. GEMFIBROZIL (GEMFIBROZIL) [Concomitant]
  11. PSYLLIUM (PLANTAGO AFRA) [Concomitant]
  12. CLOTRIMAZOLE (CLOTRIMAZOLE) [Concomitant]
  13. SIMVASTATIN (SIMVASTATIN) [Concomitant]
  14. PULMICORT (BUDESONIDE) [Concomitant]
  15. GLUCOSAINE CHONDROITIN (CHONDROITIN W/GLUCOSAMINE) [Concomitant]
  16. ALBUTEROL (SALBUTAMOL) [Concomitant]
  17. MULTIVITAMIN (DAILY MULTIVITAMIN) [Concomitant]
  18. AMOXICILLIN (AMOXICILLIN) [Concomitant]
  19. PREDNISONE (PREDNISONE) [Concomitant]
  20. BROVANA (ALL OTHER THEAPEUTIC PRODUCTS) [Concomitant]
  21. FUROSEMIDE (FUROSEMIDE) [Concomitant]
  22. POTASSIUM CHLORIDE (POTASSIUM CHLORIDE) [Concomitant]
  23. ASPIRIN (ACETYSALICYLIC ACID) [Concomitant]

REACTIONS (2)
  - Dyspnoea [None]
  - Respiratory disorder [None]
